FAERS Safety Report 6768865-6 (Version None)
Quarter: 2010Q2

REPORT INFORMATION
  Report Type: 
  Country: None (occurrence: None)
  Receive Date: 20100614
  Receipt Date: 20100607
  Transmission Date: 20101027
  Serious: Yes (Disabling)
  Sender: FDA-Public Use
  Company Number: GB-NOVEN-10GB001327

PATIENT
  Age: 52 Year
  Sex: Female

DRUGS (2)
  1. PAROXETINE HCL [Suspect]
     Indication: STRESS
     Dosage: 15 MG, QD
     Route: 048
     Dates: start: 20000101, end: 20100401
  2. IBUPROFEN TABLETS [Concomitant]
     Indication: DRUG USE FOR UNKNOWN INDICATION
     Dosage: UNK
     Route: 065

REACTIONS (8)
  - DIZZINESS [None]
  - DYSARTHRIA [None]
  - EMOTIONAL DISORDER [None]
  - HALLUCINATION [None]
  - MALAISE [None]
  - PARAESTHESIA [None]
  - PRURITUS [None]
  - WITHDRAWAL SYNDROME [None]
